FAERS Safety Report 7279768-5 (Version None)
Quarter: 2011Q1

REPORT INFORMATION
  Report Type: 
  Country: None (occurrence: None)
  Receive Date: 20110203
  Receipt Date: 20110203
  Transmission Date: 20110831
  Serious: No
  Sender: FDA-Public Use
  Company Number: None

PATIENT
  Age: 36 Year
  Sex: Female
  Weight: 61.6892 kg

DRUGS (1)
  1. DESIPRAMINE HCL [Suspect]
     Indication: MAJOR DEPRESSION
     Dosage: 3 TABLETS 1/DAY PO
     Route: 048
     Dates: start: 20110105, end: 20110129

REACTIONS (8)
  - TINNITUS [None]
  - DIZZINESS [None]
  - DELUSION [None]
  - ANXIETY [None]
  - PARANOIA [None]
  - PALPITATIONS [None]
  - EMOTIONAL DISORDER [None]
  - CRYING [None]
